FAERS Safety Report 15409077 (Version 1)
Quarter: 2018Q3

REPORT INFORMATION
  Report Type: Spontaneous
  Country: FR (occurrence: FR)
  Receive Date: 20180920
  Receipt Date: 20180920
  Transmission Date: 20181010
  Serious: Yes (Hospitalization, Other)
  Sender: FDA-Public Use
  Company Number: FR-SAKK-2018SA176148AA

PATIENT
  Age: 51 Year
  Sex: Male

DRUGS (1)
  1. ELIGLUSTAT. [Suspect]
     Active Substance: ELIGLUSTAT
     Dosage: UNK UNK, UNK

REACTIONS (5)
  - Polyuria [Unknown]
  - Asthenia [Unknown]
  - Polydipsia [Unknown]
  - Weight decreased [Unknown]
  - Type 2 diabetes mellitus [Unknown]
